FAERS Safety Report 25101262 (Version 1)
Quarter: 2025Q1

REPORT INFORMATION
  Report Type: Spontaneous
  Country: NO (occurrence: NO)
  Receive Date: 20250320
  Receipt Date: 20250320
  Transmission Date: 20250409
  Serious: Yes (Hospitalization, Other)
  Sender: AMGEN
  Company Number: None

PATIENT
  Age: 38 Year
  Sex: Male

DRUGS (7)
  1. ADALIMUMAB [Suspect]
     Active Substance: ADALIMUMAB
     Indication: Psoriatic arthropathy
     Dosage: 40 MILLIGRAM, Q2WK
     Route: 058
     Dates: start: 202410
  2. Metex [Concomitant]
     Indication: Psoriasis
     Dosage: 20 MILLIGRAM, QWK
  3. Folsyre orifarm [Concomitant]
     Dosage: 1 MILLIGRAM, QD  (1 MG EVERY DAY EXEPT THE DAY METHOTREXATE IS DOSED)
  4. Triobe [Concomitant]
     Indication: Vitamin B complex deficiency
     Dosage: 1 DOSAGE FORM, QD
     Dates: start: 20240815
  5. PANTOPRAZOLE SODIUM [Concomitant]
     Active Substance: PANTOPRAZOLE SODIUM
     Indication: Dyspepsia
     Dosage: 20 MILLIGRAM, QD
  6. SOOLANTRA [Concomitant]
     Active Substance: IVERMECTIN
     Indication: Rosacea
     Dosage: 1 DOSAGE FORM, QD
     Dates: start: 20240221
  7. CLOBETASOL [Concomitant]
     Active Substance: CLOBETASOL

REACTIONS (3)
  - Syncope [Recovered/Resolved]
  - Seizure [Unknown]
  - Blindness transient [Recovered/Resolved]

NARRATIVE: CASE EVENT DATE: 20250130
